FAERS Safety Report 24547815 (Version 1)
Quarter: 2024Q4

REPORT INFORMATION
  Report Type: Spontaneous
  Country: US (occurrence: US)
  Receive Date: 20241025
  Receipt Date: 20241025
  Transmission Date: 20250114
  Serious: Yes (Hospitalization, Other)
  Sender: GLENMARK
  Company Number: US-GLENMARK PHARMACEUTICALS-2024GMK094963

PATIENT

DRUGS (2)
  1. LACOSAMIDE [Suspect]
     Active Substance: LACOSAMIDE
     Indication: Epilepsy
     Dosage: UNK
     Route: 065
  2. CENOBAMATE [Suspect]
     Active Substance: CENOBAMATE
     Indication: Epilepsy
     Dosage: UNK
     Route: 065

REACTIONS (7)
  - Leukaemoid reaction [Unknown]
  - Status epilepticus [Unknown]
  - Lactic acidosis [Unknown]
  - Blood creatine phosphokinase increased [Unknown]
  - Rhabdomyolysis [Unknown]
  - Anticonvulsant drug level below therapeutic [Unknown]
  - Treatment noncompliance [Unknown]
